FAERS Safety Report 5257301-7 (Version None)
Quarter: 2007Q1

REPORT INFORMATION
  Report Type: 
  Country: None (occurrence: None)
  Receive Date: 20061220
  Receipt Date: 20061009
  Transmission Date: 20070707
  Serious: No
  Sender: FDA-Public Use
  Company Number: 2006RL000357

PATIENT
  Age: 71 Year
  Sex: Female

DRUGS (6)
  1. OMACOR [Suspect]
     Indication: BLOOD CHOLESTEROL INCREASED
     Dosage: 4 GM; QD; PO
     Route: 048
     Dates: start: 20061001
  2. OMACOR [Suspect]
     Indication: LOW DENSITY LIPOPROTEIN INCREASED
     Dosage: 4 GM; QD; PO
     Route: 048
     Dates: start: 20061001
  3. MAXZIDE [Suspect]
     Indication: DRUG USE FOR UNKNOWN INDICATION
     Dates: end: 20061001
  4. TENORMIN [Concomitant]
  5. NORVASC [Concomitant]
  6. PREVACID [Concomitant]

REACTIONS (1)
  - WEIGHT INCREASED [None]
